FAERS Safety Report 14530759 (Version 2)
Quarter: 2018Q1

REPORT INFORMATION
  Report Type: Spontaneous
  Country: US (occurrence: US)
  Receive Date: 20180214
  Receipt Date: 20180305
  Transmission Date: 20180509
  Serious: Yes (Death, Hospitalization, Other)
  Sender: FDA-Public Use
  Company Number: US-ASTELLAS-2018US007631

PATIENT
  Age: 61 Year
  Sex: Female

DRUGS (10)
  1. PROGRAF [Suspect]
     Active Substance: TACROLIMUS\TACROLIMUS ANHYDROUS
     Dosage: 0.5 MG, TWICE DAILY
     Route: 042
     Dates: start: 20161118
  2. PROGRAF [Suspect]
     Active Substance: TACROLIMUS\TACROLIMUS ANHYDROUS
     Dosage: 0.4 MG, TWICE DAILY
     Route: 042
     Dates: start: 20161205, end: 20161208
  3. PROGRAF [Suspect]
     Active Substance: TACROLIMUS\TACROLIMUS ANHYDROUS
     Indication: STEM CELL TRANSPLANT
     Dosage: 3 MG, ONCE DAILY (2 MG AM, AND 1 MG PM)
     Route: 048
     Dates: start: 20160713, end: 20160911
  4. PROGRAF [Suspect]
     Active Substance: TACROLIMUS\TACROLIMUS ANHYDROUS
     Dosage: 0.5 MG, TWICE DAILY
     Route: 042
     Dates: start: 20161110
  5. PROGRAF [Suspect]
     Active Substance: TACROLIMUS\TACROLIMUS ANHYDROUS
     Dosage: 0.5 MG, TWICE DAILY
     Route: 042
     Dates: start: 20161114
  6. PROGRAF [Suspect]
     Active Substance: TACROLIMUS\TACROLIMUS ANHYDROUS
     Dosage: 0.4 MG, TWICE DAILY
     Route: 042
     Dates: start: 20161120, end: 20161124
  7. PROGRAF [Suspect]
     Active Substance: TACROLIMUS\TACROLIMUS ANHYDROUS
     Dosage: 0.3 MG, TWICE DAILY
     Route: 042
     Dates: start: 20161127, end: 20161201
  8. PROGRAF [Suspect]
     Active Substance: TACROLIMUS\TACROLIMUS ANHYDROUS
     Dosage: 0.5 MG, TWICE DAILY
     Route: 042
     Dates: start: 20161116
  9. PROGRAF [Suspect]
     Active Substance: TACROLIMUS\TACROLIMUS ANHYDROUS
     Dosage: 0.75 MG, TOTAL DOSE
     Route: 042
     Dates: start: 20161107, end: 20161107
  10. TRIMETHOPRIM SULFAMETHOXAZOLE [Suspect]
     Active Substance: SULFAMETHOXAZOLE\TRIMETHOPRIM
     Indication: ANTIFUNGAL PROPHYLAXIS
     Dosage: UNK UNK, UNKNOWN FREQ.
     Route: 065

REACTIONS (13)
  - Free haemoglobin present [Recovered/Resolved]
  - Renal tubular necrosis [Recovered/Resolved]
  - Renal failure [Recovering/Resolving]
  - Embolism [Fatal]
  - Rash maculo-papular [Recovered/Resolved]
  - Haemolytic anaemia [Recovered/Resolved]
  - Bacteraemia [Fatal]
  - Graft versus host disease in gastrointestinal tract [Fatal]
  - Off label use [Unknown]
  - Thrombocytopenia [Recovered/Resolved]
  - Starvation [Fatal]
  - Fungaemia [Fatal]
  - Acute kidney injury [Recovered/Resolved]
